FAERS Safety Report 7880517-8 (Version None)
Quarter: 2011Q4

REPORT INFORMATION
  Report Type: 
  Country: None (occurrence: None)
  Receive Date: 20111101
  Receipt Date: 20111024
  Transmission Date: 20120403
  Serious: Yes (Disabling)
  Sender: FDA-Public Use
  Company Number: PHHY2011GB93619

PATIENT
  Age: 71 Year
  Sex: Female
  Weight: 101.8 kg

DRUGS (8)
  1. LOSARTAN POTASSIUM [Concomitant]
     Dosage: UNK
     Dates: start: 20110628
  2. METHYLPREDNISOLONE ACETATE [Concomitant]
     Dosage: UNK
     Dates: start: 20110906, end: 20110907
  3. ACETAMINOPHEN [Concomitant]
     Dosage: UNK
     Dates: start: 20110817
  4. CO-TRIAMTERZIDE [Concomitant]
     Dosage: UNK
     Dates: start: 20110617
  5. OMEPRAZOLE [Concomitant]
     Dosage: UNK
     Dates: start: 20110628
  6. PREDNISOLONE [Concomitant]
     Dosage: UNK
     Dates: start: 20110615, end: 20110713
  7. CODEINE PHOSPHATE [Suspect]
     Dosage: UNK
     Dates: start: 20110816, end: 20111012
  8. CO-DYDRAMOL [Concomitant]
     Dosage: UNK
     Dates: start: 20110718, end: 20110730

REACTIONS (3)
  - OEDEMA PERIPHERAL [None]
  - CELLULITIS [None]
  - INFLAMMATION [None]
